FAERS Safety Report 9206848 (Version 4)
Quarter: 2013Q4

REPORT INFORMATION
  Report Type: Spontaneous
  Country: AU (occurrence: AU)
  Receive Date: 20130403
  Receipt Date: 20131022
  Transmission Date: 20140711
  Serious: Yes (Death)
  Sender: FDA-Public Use
  Company Number: AU-ELI_LILLY_AND_COMPANY-AU201303009028

PATIENT
  Age: 9 Year
  Sex: Male

DRUGS (6)
  1. STRATTERA [Suspect]
     Indication: ATTENTION DEFICIT/HYPERACTIVITY DISORDER
     Dosage: 18 MG, EACH MORNING
     Route: 048
     Dates: start: 20110325, end: 20110327
  2. STRATTERA [Suspect]
     Dosage: 36 MG, EACH MORNING
     Route: 048
     Dates: start: 20110328
  3. CONCERTA [Concomitant]
     Dosage: 36 MG, UNKNOWN
     Dates: end: 201104
  4. MELATONIN [Concomitant]
     Dosage: 2 MG, UNKNOWN
  5. MELATONIN [Concomitant]
     Dosage: 3 MG, EACH EVENING
  6. RISPERIDONE [Concomitant]
     Dosage: 0.5 MG, UNKNOWN
     Dates: start: 201104

REACTIONS (2)
  - Completed suicide [Fatal]
  - Tic [Unknown]
